FAERS Safety Report 10556463 (Version 1)
Quarter: 2014Q4

REPORT INFORMATION
  Report Type: Spontaneous
  Country: US (occurrence: US)
  Receive Date: 20141031
  Receipt Date: 20141031
  Transmission Date: 20150529
  Serious: Yes (Hospitalization, Other)
  Sender: FDA-Public Use
  Company Number: US-BEH-2014045838

PATIENT
  Age: 58 Year
  Sex: Female

DRUGS (2)
  1. PRIVIGEN [Suspect]
     Active Substance: HUMAN IMMUNOGLOBULIN G
     Dosage: START OCT OR NOV 2013
     Route: 042
  2. SOLU-MEDROL [Suspect]
     Active Substance: METHYLPREDNISOLONE SODIUM SUCCINATE

REACTIONS (11)
  - Pneumothorax [Unknown]
  - Food poisoning [Unknown]
  - Neutropenia [Unknown]
  - Pleural adhesion [Unknown]
  - Blood pressure decreased [Unknown]
  - Vulval disorder [Unknown]
  - Weight increased [Unknown]
  - Pneumonia [Unknown]
  - Body temperature increased [Unknown]
  - Contusion [Unknown]
  - White blood cell count decreased [Unknown]

NARRATIVE: CASE EVENT DATE: 20140810
